FAERS Safety Report 8326487-X (Version None)
Quarter: 2012Q2

REPORT INFORMATION
  Report Type: 
  Country: None (occurrence: None)
  Receive Date: 20120501
  Receipt Date: 20120425
  Transmission Date: 20120825
  Serious: Yes (Other)
  Sender: FDA-Public Use
  Company Number: US-PFIZER INC-2012053191

PATIENT
  Sex: Male

DRUGS (10)
  1. COREG [Concomitant]
     Dosage: 12.5 MG, 2X/DAY
  2. LEXAPRO [Concomitant]
     Dosage: 20 MG, 1X/DAY
  3. LEXAPRO [Concomitant]
     Dosage: 10 MG, 1X/DAY
  4. ASPIRIN [Concomitant]
     Dosage: 81 MG, 1X/DAY
  5. XANAX [Concomitant]
     Dosage: 2 MG, 3X/DAY
  6. NITROSTAT [Concomitant]
     Dosage: AS NEEDED
  7. LIPITOR [Suspect]
     Indication: MYOCARDIAL INFARCTION
     Dosage: 40 MG, UNK
  8. LIPITOR [Suspect]
     Dosage: 80 MG, AT BEDTIME
  9. QUINAPRIL HYDROCHLORIDE [Concomitant]
     Dosage: 5 MG 1/2 EVERY DAY
  10. PLAVIX [Concomitant]
     Dosage: 75 MG, 1X/DAY

REACTIONS (7)
  - MYOCARDIAL INFARCTION [None]
  - MUSCULAR WEAKNESS [None]
  - AGGRESSION [None]
  - SCHIZOPHRENIA [None]
  - BIPOLAR DISORDER [None]
  - MYALGIA [None]
  - IRRITABILITY [None]
